FAERS Safety Report 20368495 (Version 3)
Quarter: 2022Q3

REPORT INFORMATION
  Report Type: Report from Study
  Country: MX (occurrence: MX)
  Receive Date: 20220124
  Receipt Date: 20220815
  Transmission Date: 20221026
  Serious: Yes (Hospitalization, Other)
  Sender: FDA-Public Use
  Company Number: MX-NOVARTISPH-NVSC2021MX273196

PATIENT
  Age: 27 Year
  Sex: Female
  Weight: 90 kg

DRUGS (4)
  1. TASIGNA [Suspect]
     Active Substance: NILOTINIB
     Indication: Chronic myeloid leukaemia
     Dosage: 4000 MG, BID
     Route: 048
     Dates: start: 2008
  2. TASIGNA [Suspect]
     Active Substance: NILOTINIB
     Dosage: 400 MG, Q12H
     Route: 048
     Dates: start: 2008
  3. TASIGNA [Suspect]
     Active Substance: NILOTINIB
     Dosage: 2 (200 MG, IN THE MORNING AND NIGHT)
     Route: 048
  4. ACETAMINOPHEN\CYANOCOBALAMIN\PYRIDOXINE\THIAMINE [Suspect]
     Active Substance: ACETAMINOPHEN\CYANOCOBALAMIN\PYRIDOXINE\THIAMINE
     Indication: Lumbar hernia
     Dosage: UNK
     Route: 065
     Dates: start: 201708

REACTIONS (13)
  - Lumbar hernia [Recovered/Resolved]
  - Spinal column injury [Recovered/Resolved]
  - Fall [Recovered/Resolved]
  - Spinal pain [Recovered/Resolved]
  - Overweight [Unknown]
  - Rash [Unknown]
  - SARS-CoV-2 test positive [Recovered/Resolved]
  - Pyrexia [Recovered/Resolved]
  - Ageusia [Recovered/Resolved]
  - Pharyngeal swelling [Recovered/Resolved]
  - Rhinorrhoea [Recovered/Resolved]
  - Cough [Recovered/Resolved]
  - Urticaria [Recovered/Resolved]

NARRATIVE: CASE EVENT DATE: 20170801
